FAERS Safety Report 5672403-9 (Version None)
Quarter: 2008Q1

REPORT INFORMATION
  Report Type: 
  Country: None (occurrence: None)
  Receive Date: 20080319
  Receipt Date: 20080313
  Transmission Date: 20080703
  Serious: Yes (Hospitalization, Other)
  Sender: FDA-Public Use
  Company Number: HQWYE701828SEP05

PATIENT
  Sex: Female
  Weight: 99.88 kg

DRUGS (5)
  1. PREMPRO [Suspect]
     Indication: HOT FLUSH
  2. PREMPRO [Suspect]
     Indication: MENOPAUSAL SYMPTOMS
  3. CYCRIN [Suspect]
  4. COMBIPATCH [Suspect]
  5. ESTRACE [Suspect]

REACTIONS (1)
  - BREAST CANCER METASTATIC [None]
